FAERS Safety Report 5044282-4 (Version None)
Quarter: 2006Q2

REPORT INFORMATION
  Report Type: 
  Country: None (occurrence: None)
  Receive Date: 20060629
  Receipt Date: 20060613
  Transmission Date: 20061013
  Serious: Yes (Hospitalization)
  Sender: FDA-Public Use
  Company Number: 2006SS000056

PATIENT
  Age: 51 Year
  Sex: Male

DRUGS (7)
  1. BOTULINUM TOXIN TYPE B (BOTULINUM TOXIN TYPE B) [Suspect]
     Indication: TORTICOLLIS
     Dosage: SEE IMAGE
     Route: 030
     Dates: start: 20041220, end: 20041220
  2. BOTULINUM TOXIN TYPE B (BOTULINUM TOXIN TYPE B) [Suspect]
     Indication: TORTICOLLIS
     Dosage: SEE IMAGE
     Route: 030
     Dates: start: 20050214, end: 20050214
  3. BOTULINUM TOXIN TYPE B (BOTULINUM TOXIN TYPE B) [Suspect]
     Indication: TORTICOLLIS
     Dosage: SEE IMAGE
     Route: 030
     Dates: start: 20050420, end: 20050420
  4. SUNBAZON (EPERISONE HYDROCHLORIDE) [Suspect]
     Indication: TORTICOLLIS
     Dosage: 150 MG;PO
     Route: 048
     Dates: start: 20040705, end: 20050629
  5. CLONAZEPAM [Suspect]
     Indication: TORTICOLLIS
     Dosage: 1.5 MG;PO
     Route: 048
     Dates: end: 20050727
  6. ARTANE [Suspect]
     Indication: TORTICOLLIS
     Dosage: UNK MG, PO
     Route: 048
     Dates: start: 20050808, end: 20050808
  7. ARTANE [Suspect]
     Indication: TORTICOLLIS
     Dosage: UNK MG, PO
     Route: 048
     Dates: start: 20050809, end: 20050926

REACTIONS (17)
  - ALANINE AMINOTRANSFERASE INCREASED [None]
  - ANOREXIA [None]
  - ASPARTATE AMINOTRANSFERASE INCREASED [None]
  - BILIARY TRACT INFECTION [None]
  - BONE MARROW FAILURE [None]
  - FEELING ABNORMAL [None]
  - GAMMA-GLUTAMYLTRANSFERASE INCREASED [None]
  - HEADACHE [None]
  - HEPATIC FUNCTION ABNORMAL [None]
  - HEPATOBILIARY DISEASE [None]
  - INFLAMMATION [None]
  - MALAISE [None]
  - NEUTROPHIL COUNT DECREASED [None]
  - PYREXIA [None]
  - THIRST [None]
  - URINARY TRACT INFECTION BACTERIAL [None]
  - WHITE BLOOD CELL COUNT DECREASED [None]
